FAERS Safety Report 5638173-5 (Version None)
Quarter: 2008Q1

REPORT INFORMATION
  Report Type: 
  Country: None (occurrence: None)
  Receive Date: 20080131
  Receipt Date: 20071105
  Transmission Date: 20080703
  Serious: No
  Sender: FDA-Public Use
  Company Number: 163-21880-07110339

PATIENT
  Age: 53 Year
  Sex: Female

DRUGS (3)
  1. REVLIMID [Suspect]
     Indication: MULTIPLE MYELOMA
     Dosage: 15, 10 MG, 1 IN 1 D, ORAL
     Route: 048
     Dates: start: 20060608, end: 20061101
  2. REVLIMID [Suspect]
     Indication: MULTIPLE MYELOMA
     Dosage: 15, 10 MG, 1 IN 1 D, ORAL
     Route: 048
     Dates: start: 20070123, end: 20071001
  3. REVLIMID [Suspect]
     Indication: MULTIPLE MYELOMA
     Dosage: 15, 10 MG, 1 IN 1 D, ORAL
     Route: 048
     Dates: start: 20071004

REACTIONS (1)
  - BREAST MASS [None]
